FAERS Safety Report 9656475 (Version 1)
Quarter: 2013Q4

REPORT INFORMATION
  Report Type: Spontaneous
  Country: US (occurrence: US)
  Receive Date: 20131030
  Receipt Date: 20131030
  Transmission Date: 20140711
  Serious: No
  Sender: FDA-Public Use
  Company Number: US-BAYER-2013-127926

PATIENT
  Sex: 0

DRUGS (3)
  1. ALEVE CAPLET [Suspect]
     Indication: ARTHRALGIA
  2. MOTRIN [Suspect]
     Indication: ARTHRALGIA
     Dosage: 800 MG, UNK
  3. HYDROCODONE [Suspect]
     Indication: ARTHRALGIA

REACTIONS (2)
  - Therapeutic response unexpected [None]
  - Drug ineffective [None]
